FAERS Safety Report 13784011 (Version 1)
Quarter: 2017Q3

REPORT INFORMATION
  Report Type: Spontaneous
  Country: FR (occurrence: FR)
  Receive Date: 20170724
  Receipt Date: 20170724
  Transmission Date: 20171127
  Serious: Yes (Hospitalization)
  Sender: FDA-Public Use
  Company Number: FR-PFIZER INC-605369

PATIENT
  Age: 17 Year
  Sex: Female

DRUGS (19)
  1. NAROPEINE [Suspect]
     Active Substance: ROPIVACAINE HYDROCHLORIDE
     Indication: ANAESTHESIA PROCEDURE
     Dosage: LUMBAR INFUSION
     Route: 050
     Dates: start: 20100517, end: 20100517
  2. ANTADYS [Concomitant]
     Active Substance: FLURBIPROFEN
     Indication: PRODUCT USED FOR UNKNOWN INDICATION
  3. KETAMINE PANPHARMA [Suspect]
     Active Substance: KETAMINE
     Indication: ANAESTHESIA PROCEDURE
     Dosage: 10 UG, UNK
     Route: 042
     Dates: start: 20100517, end: 20100517
  4. BETADINE [Suspect]
     Active Substance: POVIDONE-IODINE
     Indication: PREOPERATIVE CARE
     Dosage: UNK
     Route: 003
     Dates: start: 20100516, end: 20100517
  5. LOVENOX [Suspect]
     Active Substance: ENOXAPARIN SODIUM
     Indication: PREMEDICATION
     Dosage: 1 DF, UNK
     Route: 058
     Dates: start: 20100517, end: 20100518
  6. SEVORANE [Suspect]
     Active Substance: SEVOFLURANE
     Indication: ANAESTHESIA PROCEDURE
     Dosage: UNK
     Route: 055
     Dates: start: 20100517, end: 20100517
  7. PARACETAMOL [Concomitant]
     Active Substance: ACETAMINOPHEN
     Indication: PRODUCT USED FOR UNKNOWN INDICATION
  8. DROLEPTAN [Suspect]
     Active Substance: DROPERIDOL
     Indication: PRODUCT USED FOR UNKNOWN INDICATION
     Dosage: UNK
     Route: 042
     Dates: start: 20100517, end: 20100517
  9. SUFENTA [Suspect]
     Active Substance: SUFENTANIL CITRATE
     Indication: ANAESTHESIA PROCEDURE
     Dosage: UNK
     Route: 042
     Dates: start: 20100517, end: 20100517
  10. AUGMENTIN [Suspect]
     Active Substance: AMOXICILLIN\CLAVULANATE POTASSIUM
     Indication: ANAESTHESIA PROCEDURE
     Dosage: UNK
     Route: 042
     Dates: start: 20100517, end: 20100517
  11. PROPOFOL FRESENIUS [Suspect]
     Active Substance: PROPOFOL
     Indication: ANAESTHESIA PROCEDURE
     Dosage: UNK
     Route: 042
     Dates: start: 20100517, end: 20100517
  12. ACUPAN [Concomitant]
     Active Substance: NEFOPAM HYDROCHLORIDE
     Indication: ANAESTHESIA PROCEDURE
     Dosage: UNK
     Dates: start: 20100517
  13. DONORMYL /00886901/ [Concomitant]
     Active Substance: DOXYLAMINE SUCCINATE\SODIUM BROMIDE\SODIUM PHOSPHATE, DIBASIC, ANHYDROUS\SODIUM SULFATE
     Indication: PRODUCT USED FOR UNKNOWN INDICATION
  14. PERFALGAN [Concomitant]
     Active Substance: ACETAMINOPHEN
     Indication: ANAESTHESIA PROCEDURE
     Dosage: UNK
     Dates: start: 20100517
  15. LACTATED RINGERS [Concomitant]
     Active Substance: CALCIUM CHLORIDE\POTASSIUM CHLORIDE\SODIUM CHLORIDE\SODIUM LACTATE
     Indication: PRODUCT USED FOR UNKNOWN INDICATION
     Dosage: UNK
     Dates: start: 20100101
  16. NEURONTIN [Suspect]
     Active Substance: GABAPENTIN
     Indication: PREMEDICATION
     Dosage: 600 MG, UNK
     Route: 048
     Dates: start: 20100517, end: 20100517
  17. DESOGESTREL [Concomitant]
     Active Substance: DESOGESTREL
     Indication: PRODUCT USED FOR UNKNOWN INDICATION
  18. GLUCOSE [Concomitant]
     Active Substance: DEXTROSE
     Indication: PRODUCT USED FOR UNKNOWN INDICATION
     Dosage: UNK
     Dates: start: 20100101
  19. ATRACURIUM BESILATE [Suspect]
     Active Substance: ATRACURIUM BESYLATE
     Indication: ANAESTHESIA PROCEDURE
     Dosage: 30 MG, UNK
     Route: 042
     Dates: start: 20100517, end: 20100517

REACTIONS (2)
  - Haematuria [Recovered/Resolved]
  - Acute kidney injury [Recovered/Resolved]

NARRATIVE: CASE EVENT DATE: 20100518
